FAERS Safety Report 4611981-5 (Version None)
Quarter: 2005Q2

REPORT INFORMATION
  Report Type: 
  Country: None (occurrence: None)
  Receive Date: 20050308
  Receipt Date: 20050114
  Transmission Date: 20051028
  Serious: Yes (Other)
  Sender: FDA-Public Use
  Company Number: 2005UW00756

PATIENT
  Age: 46 Year
  Sex: Female
  Weight: 86.182 kg

DRUGS (8)
  1. CRESTOR [Suspect]
     Indication: BLOOD CHOLESTEROL INCREASED
     Dosage: 10 MG PO
     Route: 048
  2. SYNTHROID [Concomitant]
  3. DIAZIDE [Concomitant]
  4. ALLEGRA [Concomitant]
  5. MULTI-VITAMINS [Concomitant]
  6. CALCIUM GLUCONATE [Concomitant]
  7. MAGNESIUM [Concomitant]
  8. FOLIC ACID [Concomitant]

REACTIONS (1)
  - DEAFNESS [None]
